FAERS Safety Report 8581602-8 (Version None)
Quarter: 2012Q3

REPORT INFORMATION
  Report Type: 
  Country: None (occurrence: None)
  Receive Date: 20120801
  Receipt Date: 20120801
  Transmission Date: 20120928
  Serious: Yes (Disabling)
  Sender: FDA-Public Use
  Company Number: None

PATIENT
  Age: 51 Year
  Sex: Female
  Weight: 69.8539 kg

DRUGS (1)
  1. LEVOFLOXACIN [Suspect]
     Indication: SINUSITIS
     Dosage: 1 PILL 1 X DAY PO
     Route: 048
     Dates: start: 20120430, end: 20120504

REACTIONS (5)
  - PAIN IN EXTREMITY [None]
  - JOINT EFFUSION [None]
  - TENDON DISORDER [None]
  - ARTHRALGIA [None]
  - SWELLING [None]
